FAERS Safety Report 5332326-1 (Version None)
Quarter: 2007Q2

REPORT INFORMATION
  Report Type: 
  Country: None (occurrence: None)
  Receive Date: 20070523
  Receipt Date: 20070515
  Transmission Date: 20071010
  Serious: Yes (Hospitalization)
  Sender: FDA-Public Use
  Company Number: A0589466A

PATIENT
  Age: 38 Year
  Sex: Female
  Weight: 148.6 kg

DRUGS (3)
  1. SALMETEROL + FLUTICASONE [Suspect]
     Indication: ASTHMA
     Route: 055
     Dates: start: 20060105, end: 20060111
  2. LISINOPRIL [Concomitant]
  3. HYDROCHLOROTHIAZIDE [Concomitant]

REACTIONS (4)
  - ARTERIOSPASM CORONARY [None]
  - CARDIOMYOPATHY [None]
  - CHEST PAIN [None]
  - DIZZINESS [None]
